FAERS Safety Report 5400758-9 (Version None)
Quarter: 2007Q3

REPORT INFORMATION
  Report Type: 
  Country: None (occurrence: None)
  Receive Date: 20070726
  Receipt Date: 20070720
  Transmission Date: 20080115
  Serious: Yes (Hospitalization)
  Sender: FDA-Public Use
  Company Number: 2007US001610

PATIENT
  Age: 16 Year
  Sex: Male

DRUGS (2)
  1. PROGRAF [Suspect]
     Indication: KIDNEY TRANSPLANT REJECTION
     Dosage: 5 MG, WEEKLY; 4 MG, WEEKLY
     Dates: start: 20060701, end: 20061201
  2. PROGRAF [Suspect]
     Indication: KIDNEY TRANSPLANT REJECTION
     Dosage: 5 MG, WEEKLY; 4 MG, WEEKLY
     Dates: start: 20061201, end: 20070707

REACTIONS (8)
  - ACIDOSIS [None]
  - DRUG DISPENSING ERROR [None]
  - DRUG LEVEL INCREASED [None]
  - HYPERGLYCAEMIA [None]
  - HYPERKALAEMIA [None]
  - INCORRECT DOSE ADMINISTERED [None]
  - RENAL FAILURE ACUTE [None]
  - TRANSPLANT REJECTION [None]
